FAERS Safety Report 4633782-4 (Version None)
Quarter: 2005Q1

REPORT INFORMATION
  Report Type: 
  Country: None (occurrence: None)
  Receive Date: 20050325
  Receipt Date: 20041221
  Transmission Date: 20050727
  Serious: No
  Sender: FDA-Public Use
  Company Number: USA041286769

PATIENT
  Age: 78 Year
  Sex: Female

DRUGS (5)
  1. FORTEO [Suspect]
     Indication: BONE DENSITY DECREASED
     Dates: start: 20041119, end: 20041125
  2. FOSAMAX [Concomitant]
  3. LESCOL [Concomitant]
  4. DIOVAN (VALSRATAN) [Concomitant]
  5. ACETYL SALICYLIC ACID USP BAT [Concomitant]

REACTIONS (7)
  - ANOREXIA [None]
  - APHONIA [None]
  - ASTHENIA [None]
  - DYSPHONIA [None]
  - HEART RATE INCREASED [None]
  - PYREXIA [None]
  - TREMOR [None]
